FAERS Safety Report 8318021-5 (Version None)
Quarter: 2012Q2

REPORT INFORMATION
  Report Type: 
  Country: None (occurrence: None)
  Receive Date: 20120427
  Receipt Date: 20120425
  Transmission Date: 20120825
  Serious: Yes (Death, Other)
  Sender: FDA-Public Use
  Company Number: BR-ABBOTT-12P-020-0929644-00

PATIENT
  Sex: Female
  Weight: 70 kg

DRUGS (8)
  1. HUMIRA [Suspect]
     Indication: RHEUMATOID ARTHRITIS
     Route: 058
  2. OMEPRAZOLE [Concomitant]
     Indication: GASTRIC DISORDER
     Route: 048
     Dates: start: 20110601
  3. OMEPRAZOLE [Concomitant]
     Indication: PROPHYLAXIS
  4. ROXFLAN [Concomitant]
     Indication: BLOOD PRESSURE
     Dosage: IN THE MORNING
     Route: 048
     Dates: start: 20090501
  5. SODIUM DICLOFENAC [Concomitant]
     Indication: ARTHRALGIA
     Route: 048
     Dates: start: 20040101
  6. ROXFLAN [Concomitant]
     Indication: CARDIAC DISORDER
  7. PREDNISONE [Concomitant]
     Indication: ARTHRALGIA
     Route: 048
     Dates: start: 20040101
  8. ATENOLOL [Concomitant]
     Indication: BLOOD PRESSURE
     Dosage: 1 LOW DOSAGE TABLET IN THE MORNING
     Route: 048
     Dates: start: 20090501

REACTIONS (4)
  - SEPSIS [None]
  - APHAGIA [None]
  - ASTHENIA [None]
  - INFECTIOUS PLEURAL EFFUSION [None]
